FAERS Safety Report 4419716-6 (Version None)
Quarter: 2004Q3

REPORT INFORMATION
  Report Type: 
  Country: None (occurrence: None)
  Receive Date: 20040805
  Receipt Date: 20040805
  Transmission Date: 20050211
  Serious: Yes (Hospitalization)
  Sender: FDA-Public Use
  Company Number: None

PATIENT
  Sex: Male
  Weight: 106 kg

DRUGS (2)
  1. MIDAZOLAM HCL [Suspect]
     Indication: SEDATION
     Dosage: 2MG  ONCE  INTRAVENOUS
     Route: 042
     Dates: start: 20040803, end: 20040803
  2. FENTANYL [Suspect]
     Indication: SEDATION
     Dosage: 50 MICROG  ONCE  INTRAVENOUS
     Route: 042
     Dates: start: 20040803, end: 20040803

REACTIONS (1)
  - RESPIRATORY DEPRESSION [None]
